FAERS Safety Report 12326497 (Version 1)
Quarter: 2016Q2

REPORT INFORMATION
  Report Type: Spontaneous
  Country: US (occurrence: None)
  Receive Date: 20160502
  Receipt Date: 20160502
  Transmission Date: 20160815
  Serious: No
  Sender: FDA-Public Use
  Company Number: None

PATIENT
  Age: 5 Year
  Sex: Female
  Weight: 14.06 kg

DRUGS (2)
  1. AUSTRALIAN GOLD BROAD SPECTRUM SPF30 [Suspect]
     Active Substance: TITANIUM DIOXIDE\ZINC OXIDE
     Indication: THERAPEUTIC SKIN CARE TOPICAL
     Route: 003
     Dates: start: 20160427, end: 20160427
  2. AUSTRALIAN GOLD BROAD SPECTRUM SPF30 [Suspect]
     Active Substance: TITANIUM DIOXIDE\ZINC OXIDE
     Indication: PHOTOSENSITIVITY REACTION
     Route: 003
     Dates: start: 20160427, end: 20160427

REACTIONS (3)
  - Blister [None]
  - Sunburn [None]
  - Drug ineffective [None]

NARRATIVE: CASE EVENT DATE: 20160427
